FAERS Safety Report 10200881 (Version 2)
Quarter: 2014Q2

REPORT INFORMATION
  Report Type: Spontaneous
  Country: US (occurrence: US)
  Receive Date: 20140528
  Receipt Date: 20140626
  Transmission Date: 20141212
  Serious: Yes (Other)
  Sender: FDA-Public Use
  Company Number: US-ASTELLAS-2014US005935

PATIENT
  Age: 78 Year
  Sex: Male

DRUGS (2)
  1. MYRBETRIQ [Suspect]
     Indication: NOCTURIA
     Route: 048
     Dates: start: 20140512, end: 20140521
  2. MYRBETRIQ [Suspect]
     Route: 048

REACTIONS (4)
  - Fall [Unknown]
  - Dizziness [Unknown]
  - Balance disorder [Recovered/Resolved]
  - Off label use [Unknown]
